FAERS Safety Report 8422104-9 (Version None)
Quarter: 2012Q2

REPORT INFORMATION
  Report Type: 
  Country: None (occurrence: None)
  Receive Date: 20120323
  Receipt Date: 20111214
  Transmission Date: 20120825
  Serious: Yes (Hospitalization)
  Sender: FDA-Public Use
  Company Number: 163-21880-11122012

PATIENT
  Age: 59 Year
  Sex: Male

DRUGS (14)
  1. CLINDAMYCIN [Concomitant]
  2. FISH OIL (FISH OIL) [Concomitant]
  3. GENTAMICIN [Concomitant]
  4. CHLORHEXIDINE GLUCONATE [Concomitant]
  5. DOXYCYCLINE HYCLATE (DOXYCYCLINE HYCLATE) [Concomitant]
  6. FLUCONAZOLE [Concomitant]
  7. ASPIRIN [Concomitant]
  8. REVLIMID [Suspect]
     Indication: MULTIPLE MYELOMA
     Dosage: 5 MG, 3 DAYS A WEEK, PO
     Route: 048
     Dates: start: 20110113
  9. ACYCLOVIR [Concomitant]
  10. NON-ASPIRIN (PARACETAMOL) [Concomitant]
  11. RENAL SOFTGEL (RENALTABS) [Concomitant]
  12. METRONIDAZOLE [Concomitant]
  13. AMOXICILLIN [Concomitant]
  14. CALCIUM CARBONATE [Concomitant]

REACTIONS (3)
  - TOOTH INFECTION [None]
  - WHITE BLOOD CELL COUNT DECREASED [None]
  - PLATELET COUNT DECREASED [None]
